FAERS Safety Report 4659469-X (Version None)
Quarter: 2005Q2

REPORT INFORMATION
  Report Type: 
  Country: None (occurrence: None)
  Receive Date: 20050412
  Receipt Date: 20041216
  Transmission Date: 20051028
  Serious: No
  Sender: FDA-Public Use
  Company Number: 2004S1000279

PATIENT
  Age: 64 Year
  Sex: Female
  Weight: 85 kg

DRUGS (2)
  1. CUBICIN [Suspect]
     Indication: LIVER ABSCESS
     Dosage: 6 MG/KG; IV
     Route: 042
     Dates: start: 20041208, end: 20041216
  2. CUBICIN [Suspect]
     Indication: PATHOGEN RESISTANCE
     Dosage: 6 MG/KG; IV
     Route: 042
     Dates: start: 20041208, end: 20041216

REACTIONS (1)
  - CYANOSIS [None]
